FAERS Safety Report 17453550 (Version 1)
Quarter: 2020Q1

REPORT INFORMATION
  Report Type: Spontaneous
  Country: US (occurrence: US)
  Receive Date: 20200224
  Receipt Date: 20200224
  Transmission Date: 20200409
  Serious: Yes (Hospitalization, Other)
  Sender: FDA-Public Use
  Company Number: US-FRESENIUS KABI-FK202001763

PATIENT
  Age: 61 Year
  Sex: Female

DRUGS (3)
  1. ENOXAPARIN [Suspect]
     Active Substance: ENOXAPARIN
     Indication: SPINAL CORD INFARCTION
     Dosage: THERAPEUTIC
     Route: 065
  2. METHYLPREDNISOLONE (MANUFACTURER UNKNOWN) [Suspect]
     Active Substance: METHYLPREDNISOLONE
     Indication: SPINAL CORD INFARCTION
     Route: 042
  3. PREDNISONE. [Suspect]
     Active Substance: PREDNISONE
     Indication: SPINAL CORD INFARCTION
     Dosage: 40MG TAPER
     Route: 065

REACTIONS (3)
  - Epstein-Barr virus infection [Unknown]
  - Gastrointestinal haemorrhage [Unknown]
  - Large intestine infection [Unknown]
